FAERS Safety Report 6657399-5 (Version None)
Quarter: 2010Q1

REPORT INFORMATION
  Report Type: 
  Country: None (occurrence: None)
  Receive Date: 20100330
  Receipt Date: 20091218
  Transmission Date: 20100710
  Serious: Yes (Other)
  Sender: FDA-Public Use
  Company Number: US-JNJFOC-20090604668

PATIENT
  Sex: Female

DRUGS (7)
  1. LEVAQUIN [Suspect]
     Indication: CHRONIC SINUSITIS
     Route: 065
  2. LEVAQUIN [Suspect]
     Route: 065
  3. LEVAQUIN [Suspect]
     Route: 065
  4. LEVAQUIN [Suspect]
     Route: 065
  5. AVELOX [Interacting]
     Indication: CHRONIC SINUSITIS
     Route: 065
  6. AVELOX [Interacting]
     Dosage: LATE 2008
     Route: 065
  7. CORTICOSTEROID [Interacting]
     Indication: DRUG USE FOR UNKNOWN INDICATION
     Route: 048

REACTIONS (3)
  - DRUG INTERACTION [None]
  - MEDICATION ERROR [None]
  - TENDON RUPTURE [None]
